FAERS Safety Report 20320643 (Version 1)
Quarter: 2022Q1

REPORT INFORMATION
  Report Type: Spontaneous
  Country: CA (occurrence: CA)
  Receive Date: 20220111
  Receipt Date: 20220111
  Transmission Date: 20220423
  Serious: Yes (Other)
  Sender: FDA-Public Use
  Company Number: CA-GLAXOSMITHKLINE-CA2021140561

PATIENT
  Age: 76 Year
  Sex: Female

DRUGS (3)
  1. ZEJULA [Suspect]
     Active Substance: NIRAPARIB
     Indication: Ovarian epithelial cancer
     Dosage: 200 MG, QD
     Route: 048
     Dates: start: 20210625
  2. ZEJULA [Suspect]
     Active Substance: NIRAPARIB
     Indication: Fallopian tube cancer
     Dosage: 100 MG, QD
     Route: 048
     Dates: end: 20211229
  3. ZEJULA [Suspect]
     Active Substance: NIRAPARIB
     Indication: Malignant peritoneal neoplasm

REACTIONS (16)
  - Malignant neoplasm progression [Unknown]
  - Mental impairment [Recovered/Resolved]
  - Nausea [Unknown]
  - Insomnia [Recovering/Resolving]
  - Arthralgia [Recovered/Resolved]
  - Neck pain [Recovered/Resolved]
  - Back pain [Not Recovered/Not Resolved]
  - Pain [Recovered/Resolved]
  - Renal disorder [Unknown]
  - Palpitations [Recovering/Resolving]
  - Stent removal [Unknown]
  - Heart rate decreased [Unknown]
  - Glomerular filtration rate decreased [Unknown]
  - Pain in extremity [Recovering/Resolving]
  - Meniscus injury [Unknown]
  - Drug ineffective [Unknown]

NARRATIVE: CASE EVENT DATE: 20210625
